FAERS Safety Report 9001561 (Version 1)
Quarter: 2013Q1

REPORT INFORMATION
  Report Type: Spontaneous
  Country: US (occurrence: US)
  Receive Date: 20130107
  Receipt Date: 20130107
  Transmission Date: 20140127
  Serious: Yes (Other)
  Sender: FDA-Public Use
  Company Number: US-BAYER-2013-001322

PATIENT
  Sex: Female

DRUGS (1)
  1. BRONKAID [Suspect]
     Indication: ASTHMA
     Dosage: 1 DF, QD

REACTIONS (1)
  - Drug dependence [None]
